FAERS Safety Report 20461860 (Version 2)
Quarter: 2022Q1

REPORT INFORMATION
  Report Type: Spontaneous
  Country: ES (occurrence: ES)
  Receive Date: 20220211
  Receipt Date: 20220302
  Transmission Date: 20220423
  Serious: Yes (Hospitalization, Other)
  Sender: FDA-Public Use
  Company Number: ES-ASTELLAS-2022US003907

PATIENT
  Age: 69 Year
  Sex: Male

DRUGS (2)
  1. BENDAMUSTINE HYDROCHLORIDE [Suspect]
     Active Substance: BENDAMUSTINE HYDROCHLORIDE
     Indication: Waldenstrom^s macroglobulinaemia
     Route: 042
  2. RITUXIMAB [Concomitant]
     Active Substance: RITUXIMAB
     Indication: Waldenstrom^s macroglobulinaemia
     Route: 065

REACTIONS (6)
  - Agranulocytosis [Recovering/Resolving]
  - Autoimmune neutropenia [Recovering/Resolving]
  - Escherichia urinary tract infection [Unknown]
  - Escherichia bacteraemia [Unknown]
  - Product use issue [Unknown]
  - Off label use [Unknown]
